FAERS Safety Report 8270799-5 (Version None)
Quarter: 2012Q2

REPORT INFORMATION
  Report Type: 
  Country: None (occurrence: None)
  Receive Date: 20120410
  Receipt Date: 20120326
  Transmission Date: 20120825
  Serious: Yes (Other)
  Sender: FDA-Public Use
  Company Number: US-ROCHE-1053824

PATIENT
  Sex: Male
  Weight: 86.26 kg

DRUGS (7)
  1. IMODIUM [Concomitant]
     Indication: DIARRHOEA
     Route: 048
     Dates: start: 20060101
  2. FLUOROURACIL [Concomitant]
     Route: 042
  3. LEUCOVORIN CALCIUM [Concomitant]
     Route: 042
  4. IRINOTECAN HYDROCHLORIDE [Concomitant]
     Route: 042
  5. AVASTIN [Suspect]
     Indication: COLORECTAL CANCER METASTATIC
     Dates: start: 20050101, end: 20120227
  6. LOMOTIL [Concomitant]
     Indication: DIARRHOEA
     Route: 048
     Dates: start: 20060101
  7. OXALIPLATIN [Concomitant]
     Route: 042

REACTIONS (2)
  - LUNG NEOPLASM [None]
  - HEPATIC NEOPLASM [None]
